FAERS Safety Report 7217814-5 (Version None)
Quarter: 2011Q1

REPORT INFORMATION
  Report Type: 
  Country: None (occurrence: None)
  Receive Date: 20110110
  Receipt Date: 20050406
  Transmission Date: 20110831
  Serious: Yes (Other)
  Sender: FDA-Public Use
  Company Number: PHHY2005CA02209

PATIENT
  Sex: Female

DRUGS (4)
  1. FLORINEF [Concomitant]
     Dosage: 0.1 MG
     Route: 048
  2. PREDNISONE [Concomitant]
     Dosage: 7.5 MG
     Route: 048
  3. EFFEXOR [Concomitant]
     Dosage: 75 MG
     Route: 048
  4. SANDOSTATIN LAR [Suspect]
     Dosage: 20 MG, EVERY 4 WEEKS
     Dates: start: 20040320

REACTIONS (3)
  - VOMITING [None]
  - NAUSEA [None]
  - SURGERY [None]
